FAERS Safety Report 19450618 (Version 1)
Quarter: 2021Q2

REPORT INFORMATION
  Report Type: Spontaneous
  Country: GB (occurrence: GB)
  Receive Date: 20210622
  Receipt Date: 20210622
  Transmission Date: 20210717
  Serious: Yes (Other)
  Sender: FDA-Public Use
  Company Number: GB-JNJFOC-20210647090

PATIENT
  Age: 37 Year
  Sex: Male

DRUGS (3)
  1. PFIZER?BIONTECH COVID?19 VACCINE [Suspect]
     Active Substance: TOZINAMERAN
     Indication: PRODUCT USED FOR UNKNOWN INDICATION
     Dosage: UNK
     Route: 065
     Dates: start: 20210522
  2. PROPOFOL. [Suspect]
     Active Substance: PROPOFOL
     Indication: PRODUCT USED FOR UNKNOWN INDICATION
     Dosage: UNK
     Route: 065
  3. RIVAROXABAN [Suspect]
     Active Substance: RIVAROXABAN
     Indication: DEEP VEIN THROMBOSIS
     Dosage: UNK
     Route: 048

REACTIONS (4)
  - Deep vein thrombosis [Recovering/Resolving]
  - Dyspnoea [Not Recovered/Not Resolved]
  - Weight decreased [Not Recovered/Not Resolved]
  - Myalgia [Not Recovered/Not Resolved]

NARRATIVE: CASE EVENT DATE: 20210601
